FAERS Safety Report 7529454-9 (Version None)
Quarter: 2011Q2

REPORT INFORMATION
  Report Type: 
  Country: None (occurrence: None)
  Receive Date: 20110520
  Receipt Date: 20110317
  Transmission Date: 20111010
  Serious: No
  Sender: FDA-Public Use
  Company Number: 023497

PATIENT
  Age: 57 Year
  Sex: Male

DRUGS (6)
  1. VALPROATE SODIUM [Concomitant]
  2. PHENYTOIN [Concomitant]
  3. LACOSAMIDE [Suspect]
     Indication: STATUS EPILEPTICUS
     Dosage: (50 MG QOD ORAL) ; (100 MG QOD ORAL) ; (200 MG QOD ORAL)
     Route: 048
  4. LEVETIRACETAM [Suspect]
     Indication: STATUS EPILEPTICUS
     Dosage: SEE IMAGE
     Route: 042
  5. FOSPHENYTOIN [Concomitant]
  6. LORAZEPAM [Concomitant]

REACTIONS (1)
  - OFF LABEL USE [None]
